FAERS Safety Report 11770577 (Version 3)
Quarter: 2016Q1

REPORT INFORMATION
  Report Type: Report from Study
  Country: US (occurrence: US)
  Receive Date: 20151123
  Receipt Date: 20160224
  Transmission Date: 20160525
  Serious: No
  Sender: FDA-Public Use
  Company Number: PHEH2015US024456

PATIENT
  Sex: Female
  Weight: 90.32 kg

DRUGS (3)
  1. ALPRAZOLAM. [Concomitant]
     Active Substance: ALPRAZOLAM
     Indication: ANXIETY
     Dosage: 1 DF, QD
     Route: 048
     Dates: start: 20151110
  2. SPRINTEC [Concomitant]
     Active Substance: ETHINYL ESTRADIOL\NORGESTIMATE
     Indication: PRODUCT USED FOR UNKNOWN INDICATION
     Dosage: 1 DF, QHS
     Route: 048
     Dates: start: 20151112
  3. GILENYA [Suspect]
     Active Substance: FINGOLIMOD HYDROCHLORIDE
     Indication: MULTIPLE SCLEROSIS
     Dosage: 0.5 MG, QD
     Route: 048
     Dates: start: 20151106, end: 20151119

REACTIONS (19)
  - Blood thyroid stimulating hormone increased [Unknown]
  - Balance disorder [Unknown]
  - Muscle spasms [Unknown]
  - Gait disturbance [Unknown]
  - Vision blurred [Not Recovered/Not Resolved]
  - Pain [Unknown]
  - Somnolence [Not Recovered/Not Resolved]
  - Multiple sclerosis relapse [Unknown]
  - Hypersomnia [Unknown]
  - Muscle tightness [Unknown]
  - Musculoskeletal stiffness [Unknown]
  - Fall [Unknown]
  - Malaise [Unknown]
  - Diplopia [Recovered/Resolved]
  - Back pain [Unknown]
  - Headache [Not Recovered/Not Resolved]
  - Speech disorder [Unknown]
  - Movement disorder [Unknown]
  - Visual impairment [Not Recovered/Not Resolved]
